FAERS Safety Report 4630016-1 (Version None)
Quarter: 2005Q2

REPORT INFORMATION
  Report Type: 
  Country: None (occurrence: None)
  Receive Date: 20050408
  Receipt Date: 20050330
  Transmission Date: 20051028
  Serious: Yes (Hospitalization)
  Sender: FDA-Public Use
  Company Number: BE-BRISTOL-MYERS SQUIBB COMPANY-12914438

PATIENT
  Age: 50 Year
  Sex: Male

DRUGS (7)
  1. ATAZANAVIR [Suspect]
     Indication: HIV INFECTION
     Route: 048
  2. VIREAD [Concomitant]
     Route: 048
     Dates: start: 20050101
  3. EPIVIR [Concomitant]
     Route: 048
     Dates: start: 20050101
  4. MEDROL [Concomitant]
     Route: 042
     Dates: start: 20050329
  5. SPIRIVA [Concomitant]
     Route: 055
     Dates: start: 20040927
  6. COMBIVENT [Concomitant]
     Route: 055
     Dates: start: 20040927
  7. SERETIDE [Concomitant]
     Route: 055
     Dates: start: 20040323

REACTIONS (1)
  - RESPIRATORY FAILURE [None]
